FAERS Safety Report 5160636-X (Version None)
Quarter: 2006Q4

REPORT INFORMATION
  Report Type: 
  Country: None (occurrence: None)
  Receive Date: 20060919
  Receipt Date: 20060815
  Transmission Date: 20070319
  Serious: No
  Sender: FDA-Public Use
  Company Number: 2006US001890

PATIENT
  Age: 80 Year
  Sex: Female

DRUGS (1)
  1. SOLIFENACIN (SOLIFENACIN) TABLET [Suspect]
     Indication: DRUG USE FOR UNKNOWN INDICATION
     Route: 065

REACTIONS (1)
  - RASH [None]
